FAERS Safety Report 8988356 (Version 1)
Quarter: 2012Q4

REPORT INFORMATION
  Report Type: Spontaneous
  Country: GB (occurrence: None)
  Receive Date: 20121218
  Receipt Date: 20121218
  Transmission Date: 20130627
  Serious: Yes (Disabling, Other)
  Sender: FDA-Public Use
  Company Number: TUK2012A00314

PATIENT
  Age: 67 Year
  Sex: Male

DRUGS (12)
  1. PIOGLITAZONE HYDROCHLORIDE [Suspect]
     Indication: DIABETES MELLITUS
     Route: 048
     Dates: start: 20120411, end: 20120831
  2. ASPIRIN (ACETYLSALICYLIC ACID) [Concomitant]
  3. ATORVASTATIN (ATORVASTATIN) [Concomitant]
  4. DIGOXIN (DIGOXIN) [Concomitant]
  5. LISINOPRIL (LISINOPRIL) [Concomitant]
  6. METFORMIN (METFORMIN) [Concomitant]
  7. NOVOMIX (INSULIN ASPART, INSULIN ASPART PROTAMINE (CRYSTALLINE)) [Concomitant]
  8. TAMSULOSIN (TAMSULOSIN) [Concomitant]
  9. TILDIEM (DILTIAZEM HYDROCHLORIDE) [Concomitant]
  10. TRIMETHOPRIM (TRIMETHOPRIM) [Concomitant]
  11. WARFARIN (WARFARIN) [Concomitant]
  12. METOPROLOL (METOPROLOL) [Concomitant]

REACTIONS (6)
  - Brain natriuretic peptide increased [None]
  - Cardiomegaly [None]
  - Left ventricular failure [None]
  - Cardiac failure [None]
  - Oedema [None]
  - Dyspnoea [None]
